FAERS Safety Report 7751516-1 (Version None)
Quarter: 2011Q3

REPORT INFORMATION
  Report Type: 
  Country: None (occurrence: None)
  Receive Date: 20110914
  Receipt Date: 20110907
  Transmission Date: 20111222
  Serious: Yes (Other)
  Sender: FDA-Public Use
  Company Number: PHEH2009US13748

PATIENT
  Sex: Female

DRUGS (14)
  1. WELLBUTRIN [Concomitant]
     Dosage: 150 MG, UNK
  2. AMBIEN [Concomitant]
     Dosage: 10 MG, QHS
     Route: 048
  3. FEMARA [Concomitant]
  4. CYMBALTA [Concomitant]
     Dosage: 30 MG, BID
  5. ALBUTEROL [Concomitant]
     Dosage: 90 UG, UNK
  6. AROMASIN [Concomitant]
     Dosage: 25 MG, QD
  7. EFFEXOR [Concomitant]
     Dosage: 75 MG, QD
     Route: 048
  8. MULTI-VITAMINS [Concomitant]
  9. TRAZODONE HCL [Concomitant]
     Dosage: 150 MG, QHS
     Route: 048
  10. TOPROL-XL [Concomitant]
     Dosage: 50 MG, QD
  11. ZOMETA [Suspect]
  12. VICODIN [Concomitant]
  13. PRILOSEC [Concomitant]
     Dosage: 20 MG, BID
  14. LEXAPRO [Concomitant]
     Dosage: 20 MG, QD
     Route: 048

REACTIONS (27)
  - INJURY [None]
  - HEPATIC CYST [None]
  - OSTEONECROSIS OF JAW [None]
  - GENERAL PHYSICAL HEALTH DETERIORATION [None]
  - LYMPHADENOPATHY MEDIASTINAL [None]
  - CHRONIC SINUSITIS [None]
  - LYMPHOEDEMA [None]
  - DEPRESSION [None]
  - BACK PAIN [None]
  - JAW FRACTURE [None]
  - HEPATIC STEATOSIS [None]
  - GASTRITIS [None]
  - TONSILLECTOMY [None]
  - ANHEDONIA [None]
  - PAIN [None]
  - ORAL CAVITY FISTULA [None]
  - OSTEOPENIA [None]
  - SPINAL OSTEOARTHRITIS [None]
  - LUNG NEOPLASM [None]
  - GASTROOESOPHAGEAL REFLUX DISEASE [None]
  - ABDOMINAL PAIN [None]
  - ANXIETY [None]
  - BREAST CANCER [None]
  - CYST [None]
  - OSTEOARTHRITIS [None]
  - HIATUS HERNIA [None]
  - OSTEOMYELITIS [None]
